FAERS Safety Report 6428588-X (Version None)
Quarter: 2009Q4

REPORT INFORMATION
  Report Type: 
  Country: None (occurrence: None)
  Receive Date: 20091102
  Receipt Date: 20091022
  Transmission Date: 20100525
  Serious: Yes (Disabling)
  Sender: FDA-Public Use
  Company Number: 2009-04412

PATIENT
  Age: 80 Year
  Sex: Male

DRUGS (3)
  1. VELCADE [Suspect]
     Indication: MULTIPLE MYELOMA
  2. REVLIMID [Suspect]
     Indication: MULTIPLE MYELOMA
     Dosage: 25 MG, ORAL ; 15 MG, ORAL
     Route: 048
     Dates: start: 20090528, end: 20090101
  3. REVLIMID [Suspect]
     Indication: MULTIPLE MYELOMA
     Dosage: 25 MG, ORAL ; 15 MG, ORAL
     Route: 048
     Dates: start: 20090101

REACTIONS (7)
  - ANAEMIA [None]
  - ASTHENIA [None]
  - DYSPNOEA [None]
  - EPIDERMAL GROWTH FACTOR RECEPTOR DECREASED [None]
  - FATIGUE [None]
  - NEUROPATHY PERIPHERAL [None]
  - POLYURIA [None]
